FAERS Safety Report 5910322-0 (Version None)
Quarter: 2008Q4

REPORT INFORMATION
  Report Type: 
  Country: None (occurrence: None)
  Receive Date: 20081007
  Receipt Date: 20071126
  Transmission Date: 20090506
  Serious: No
  Sender: FDA-Public Use
  Company Number: US-ASTRAZENECA-2007UW27069

PATIENT
  Age: 73 Year
  Sex: Female

DRUGS (1)
  1. ARIMIDEX [Suspect]
     Indication: BREAST CANCER
     Route: 048

REACTIONS (10)
  - ARTHRALGIA [None]
  - ASTHENIA [None]
  - DEPRESSION [None]
  - HEADACHE [None]
  - HYPOAESTHESIA [None]
  - MOOD ALTERED [None]
  - MUSCULOSKELETAL PAIN [None]
  - OROPHARYNGEAL PAIN [None]
  - OSTEOPOROSIS [None]
  - PAIN IN EXTREMITY [None]
